FAERS Safety Report 4715840-9 (Version None)
Quarter: 2005Q3

REPORT INFORMATION
  Report Type: 
  Country: None (occurrence: None)
  Receive Date: 20050718
  Receipt Date: 20050711
  Transmission Date: 20060218
  Serious: Yes (Hospitalization)
  Sender: FDA-Public Use
  Company Number: US-BRISTOL-MYERS SQUIBB COMPANY-13033782

PATIENT
  Age: 46 Year
  Sex: Male

DRUGS (8)
  1. CETUXIMAB [Suspect]
     Indication: NON-SMALL CELL LUNG CANCER
     Dosage: INITIATED ON 29-MAR-2005.
     Route: 042
     Dates: start: 20050705, end: 20050705
  2. CARBOPLATIN [Suspect]
     Indication: NON-SMALL CELL LUNG CANCER
     Route: 042
     Dates: start: 20050621, end: 20050621
  3. TAXOL [Suspect]
     Indication: NON-SMALL CELL LUNG CANCER
     Dosage: INITIATED ON 29-MAR-2005.
     Route: 042
     Dates: start: 20050621, end: 20050621
  4. BENADRYL [Concomitant]
     Dates: start: 20050502
  5. PRILOSEC [Concomitant]
     Dates: start: 20020101
  6. XANAX [Concomitant]
     Dates: start: 20020101
  7. LOTREL [Concomitant]
     Dates: start: 20030401
  8. CELEXA [Concomitant]
     Dates: start: 20030401

REACTIONS (1)
  - THROMBOSIS [None]
